FAERS Safety Report 9342086 (Version 5)
Quarter: 2013Q3

REPORT INFORMATION
  Report Type: Spontaneous
  Country: IT (occurrence: IT)
  Receive Date: 20130611
  Receipt Date: 20130919
  Transmission Date: 20140515
  Serious: Yes (Death)
  Sender: FDA-Public Use
  Company Number: IT-009507513-1306ITA003790

PATIENT
  Age: 65 Year
  Sex: Female
  Weight: 80 kg

DRUGS (13)
  1. SYCREST [Suspect]
     Indication: MANIA
     Dosage: 5 MG, BID
     Route: 060
     Dates: start: 20120906, end: 20130201
  2. SYCREST [Interacting]
     Indication: BIPOLAR DISORDER
  3. SEROQUEL [Suspect]
     Indication: SLEEP DISORDER
     Dosage: 25 MG, BID
     Route: 048
     Dates: start: 20120906, end: 20130201
  4. SEROQUEL [Suspect]
     Dosage: 25 MG, QD
     Route: 048
  5. FLUNOX (FLURAZEPAM HYDROCHLORIDE) [Suspect]
     Indication: MANIA
     Dosage: 30 MG, QD
     Route: 048
     Dates: start: 2009, end: 20130201
  6. FLUNOX (FLURAZEPAM HYDROCHLORIDE) [Suspect]
     Indication: BIPOLAR DISORDER
  7. CARBOLITHIUM [Suspect]
     Indication: MANIA
     Dosage: 300 MG, TID
     Route: 048
     Dates: start: 20090101, end: 20130201
  8. CARBOLITHIUM [Suspect]
     Indication: BIPOLAR DISORDER
  9. CIPROFLOXACIN [Interacting]
     Indication: CHRONIC OBSTRUCTIVE PULMONARY DISEASE
     Dosage: 500 MG, DAILY
     Route: 048
     Dates: start: 20130131, end: 20130201
  10. CIPROFLOXACIN [Interacting]
     Indication: RESPIRATORY TRACT INFECTION BACTERIAL
  11. TAVOR (LORAZEPAM) [Concomitant]
     Dosage: 2.5 MG, TID
  12. AKINETON TABLETS [Concomitant]
     Dosage: 4 MG, QD
  13. VALIUM [Concomitant]
     Dosage: 10 DROPS, TWICE A DAY

REACTIONS (4)
  - Cardiac death [Fatal]
  - Chronic obstructive pulmonary disease [Unknown]
  - Respiratory tract infection bacterial [Fatal]
  - Drug interaction [Unknown]
